FAERS Safety Report 7802586-3 (Version None)
Quarter: 2011Q4

REPORT INFORMATION
  Report Type: 
  Country: None (occurrence: None)
  Receive Date: 20111007
  Receipt Date: 20110923
  Transmission Date: 20120403
  Serious: Yes (Hospitalization)
  Sender: FDA-Public Use
  Company Number: NL-ROCHE-803262

PATIENT
  Sex: Female
  Weight: 48 kg

DRUGS (17)
  1. PREDNISONE [Suspect]
     Route: 048
  2. COTRIM [Concomitant]
     Indication: PROPHYLAXIS
     Route: 048
     Dates: start: 20110901, end: 20110914
  3. GRANISETRON [Concomitant]
     Indication: NAUSEA
     Route: 048
     Dates: start: 20110912, end: 20110914
  4. VINCRISTINE [Suspect]
     Indication: DIFFUSE LARGE B-CELL LYMPHOMA
     Dosage: LAST DOSE PRIOR TO SAE: 06 SEP 2011
     Route: 042
  5. METOCLOPRAMIDE [Concomitant]
     Indication: NAUSEA
     Dosage: FORM: SUPP
  6. MABTHERA [Suspect]
     Indication: DIFFUSE LARGE B-CELL LYMPHOMA
     Dosage: DATE OF LAST DOSE PRIOR TO SAE: 06 AUG 2011
     Route: 042
  7. PREDNISONE [Suspect]
     Route: 048
     Dates: start: 20110912, end: 20110912
  8. MOVICOLON [Concomitant]
     Indication: CONSTIPATION
     Route: 048
     Dates: start: 20110901, end: 20110914
  9. PREDNISONE [Suspect]
     Route: 048
     Dates: start: 20110911, end: 20110911
  10. FILGRASTIM [Suspect]
     Indication: DIFFUSE LARGE B-CELL LYMPHOMA
     Dosage: LAST DOSE PRIOR TO SAE: 07 SEP 2011
     Route: 058
  11. NEXIUM [Concomitant]
     Indication: GASTRITIS
     Route: 048
     Dates: start: 20110901, end: 20110914
  12. METFORMIN HYDROCHLORIDE [Concomitant]
     Indication: DIABETES MELLITUS
     Route: 048
     Dates: start: 20110908, end: 20110914
  13. PREDNISONE [Suspect]
     Indication: DIFFUSE LARGE B-CELL LYMPHOMA
     Route: 048
     Dates: start: 20110901, end: 20110910
  14. DOXORUBICIN/DOXORUBICIN HYDROCHLORIDE [Suspect]
     Indication: DIFFUSE LARGE B-CELL LYMPHOMA
     Dosage: LAST DOSE PRIOR TO SAE: 06 SEP 2011.
     Route: 042
  15. CYCLOPHOSPHAMIDE [Suspect]
     Indication: DIFFUSE LARGE B-CELL LYMPHOMA
     Route: 042
  16. VALACICLOVIR [Concomitant]
     Indication: PROPHYLAXIS
     Route: 048
     Dates: start: 20110901, end: 20110914
  17. ASCAL [Concomitant]
     Indication: TRANSIENT ISCHAEMIC ATTACK
     Route: 048
     Dates: start: 20110901, end: 20110914

REACTIONS (2)
  - MUSCULAR WEAKNESS [None]
  - HYPOPHOSPHATAEMIA [None]
